FAERS Safety Report 8516839-7 (Version None)
Quarter: 2012Q2

REPORT INFORMATION
  Report Type: 
  Country: None (occurrence: None)
  Receive Date: 20120406
  Receipt Date: 20100107
  Transmission Date: 20120825
  Serious: Yes (Hospitalization)
  Sender: FDA-Public Use
  Company Number: PHEH2009US16291

PATIENT
  Sex: Male

DRUGS (14)
  1. VITAMIN B12 [Concomitant]
  2. LEXAPRO [Concomitant]
  3. IRON (IRON) [Concomitant]
  4. SYNTHROID [Concomitant]
  5. ZOCOR [Concomitant]
  6. LIPID MODIFYING AGENTS (NO INGREDIENTS/SUBSTANCES) [Concomitant]
  7. INSULIN (INSULIN) [Concomitant]
  8. NEXIUM [Concomitant]
  9. FLOMAX [Concomitant]
  10. AZMACORT [Concomitant]
  11. LOPRESSOR [Concomitant]
  12. NORVASC [Concomitant]
  13. TASIGNA [Suspect]
     Indication: CHRONIC MYELOID LEUKAEMIA
     Dosage: 400 MG, BID, ORAL
     Route: 048
  14. PLAVIX [Concomitant]

REACTIONS (4)
  - ANGINA PECTORIS [None]
  - BLOOD GLUCOSE INCREASED [None]
  - CHRONIC MYELOID LEUKAEMIA [None]
  - DYSPNOEA [None]
